FAERS Safety Report 5894545-5 (Version None)
Quarter: 2008Q3

REPORT INFORMATION
  Report Type: 
  Country: None (occurrence: None)
  Receive Date: 20080924
  Receipt Date: 20080912
  Transmission Date: 20090109
  Serious: Yes (Hospitalization, Other)
  Sender: FDA-Public Use
  Company Number: JP-JNJFOC-20080901658

PATIENT
  Sex: Female

DRUGS (13)
  1. TOPINA [Suspect]
  2. TOPINA [Suspect]
     Indication: EPILEPSY
  3. MYSTAN [Suspect]
     Route: 048
  4. MYSTAN [Suspect]
     Indication: EPILEPSY
     Route: 048
  5. HYDANTOL F [Suspect]
  6. HYDANTOL F [Suspect]
     Indication: DRUG USE FOR UNKNOWN INDICATION
  7. DEPAKENE [Concomitant]
  8. DEPAKENE [Concomitant]
     Indication: DRUG USE FOR UNKNOWN INDICATION
  9. ALEVIATIN [Concomitant]
     Route: 048
  10. ALEVIATIN [Concomitant]
     Indication: DRUG USE FOR UNKNOWN INDICATION
     Route: 048
  11. DIAZEPAM [Concomitant]
     Indication: DRUG USE FOR UNKNOWN INDICATION
     Route: 048
  12. SUMATRIPTAN SUCCINATE [Concomitant]
     Indication: DRUG USE FOR UNKNOWN INDICATION
     Route: 048
  13. TRYPTANOL [Concomitant]
     Indication: DRUG USE FOR UNKNOWN INDICATION

REACTIONS (13)
  - AGGRESSION [None]
  - CONFUSIONAL STATE [None]
  - CONVULSION [None]
  - CRYING [None]
  - DYSSTASIA [None]
  - INSOMNIA [None]
  - IRRITABILITY [None]
  - MUSCULAR WEAKNESS [None]
  - PNEUMONIA ASPIRATION [None]
  - PYREXIA [None]
  - RESTLESSNESS [None]
  - SOMNOLENCE [None]
  - SPEECH DISORDER [None]
